FAERS Safety Report 4882438-1 (Version None)
Quarter: 2006Q1

REPORT INFORMATION
  Report Type: 
  Country: None (occurrence: None)
  Receive Date: 20060113
  Receipt Date: 20060105
  Transmission Date: 20060701
  Serious: Yes (Hospitalization, Other)
  Sender: FDA-Public Use
  Company Number: WAES 0601USA00398

PATIENT

DRUGS (2)
  1. TRUSOPT [Suspect]
     Dosage: OPHT
     Route: 047
  2. XALATAN [Suspect]

REACTIONS (1)
  - GASTRIC ULCER [None]
